FAERS Safety Report 5904382-0 (Version None)
Quarter: 2008Q4

REPORT INFORMATION
  Report Type: 
  Country: None (occurrence: None)
  Receive Date: 20081001
  Receipt Date: 20080925
  Transmission Date: 20090506
  Serious: Yes (Other)
  Sender: FDA-Public Use
  Company Number: PHHY2008JP21235

PATIENT
  Age: 13 Year
  Sex: Female

DRUGS (7)
  1. TEGRETOL [Suspect]
     Indication: EPILEPSY
     Dosage: UNK
  2. ZADITEN [Suspect]
  3. MYSTAN AZWELL [Concomitant]
  4. DEPAKENE [Concomitant]
  5. GASMOTIN [Concomitant]
  6. MUCODYNE [Concomitant]
  7. TRICLORYL [Concomitant]

REACTIONS (1)
  - POST PROCEDURAL COMPLICATION [None]
